FAERS Safety Report 12202240 (Version 1)
Quarter: 2016Q1

REPORT INFORMATION
  Report Type: Report from Study
  Country: MX (occurrence: MX)
  Receive Date: 20160322
  Receipt Date: 20160322
  Transmission Date: 20160526
  Serious: Yes (Hospitalization)
  Sender: FDA-Public Use
  Company Number: PHHY2015MX174536

PATIENT
  Sex: Male

DRUGS (2)
  1. ULTIBRO BREEZHALER [Suspect]
     Active Substance: GLYCOPYRRONIUM\INDACATEROL
     Indication: PRODUCT USED FOR UNKNOWN INDICATION
     Dosage: AT 8:00 AM
     Route: 065
  2. ALVESCO [Concomitant]
     Active Substance: CICLESONIDE
     Indication: PRODUCT USED FOR UNKNOWN INDICATION
     Route: 065

REACTIONS (10)
  - Depressed mood [Unknown]
  - Anxiety [Unknown]
  - Depression [Unknown]
  - Productive cough [Recovering/Resolving]
  - Nasopharyngitis [Unknown]
  - Decreased activity [Unknown]
  - Choking [Unknown]
  - Respiratory disorder [Unknown]
  - Cough [Unknown]
  - Dyspnoea [Unknown]
